FAERS Safety Report 10374783 (Version 1)
Quarter: 2014Q3

REPORT INFORMATION
  Report Type: Spontaneous
  Country: CA (occurrence: CA)
  Receive Date: 20140811
  Receipt Date: 20140811
  Transmission Date: 20150326
  Serious: Yes (Other)
  Sender: FDA-Public Use
  Company Number: CA-ROCHE-1446822

PATIENT
  Age: 36 Year
  Sex: Female

DRUGS (8)
  1. DEXAMETHASONE. [Concomitant]
     Active Substance: DEXAMETHASONE
     Route: 065
  2. LETROZOLE. [Concomitant]
     Active Substance: LETROZOLE
     Route: 065
  3. TYKERB [Suspect]
     Active Substance: LAPATINIB DITOSYLATE
     Indication: PRODUCT USED FOR UNKNOWN INDICATION
     Dosage: THERAPY DURATION:  158.0 DAY(S)
     Route: 048
  4. TYKERB [Suspect]
     Active Substance: LAPATINIB DITOSYLATE
     Dosage: THERAPY DURATION:  72.0 DAY(S)
     Route: 048
  5. XGEVA [Concomitant]
     Active Substance: DENOSUMAB
     Dosage: DOSAGE FORM: SINGLE USE VIAL PRESERVATIVE FREE
     Route: 058
  6. ACETAMINOPHEN. [Concomitant]
     Active Substance: ACETAMINOPHEN
     Route: 065
  7. XELODA [Suspect]
     Active Substance: CAPECITABINE
     Indication: PRODUCT USED FOR UNKNOWN INDICATION
     Route: 065
  8. METOCLOPRAMIDE HCL [Concomitant]
     Active Substance: METOCLOPRAMIDE HYDROCHLORIDE
     Route: 065

REACTIONS (20)
  - Constipation [Not Recovered/Not Resolved]
  - Skin fissures [Not Recovered/Not Resolved]
  - White blood cell count decreased [Not Recovered/Not Resolved]
  - Decreased appetite [Not Recovered/Not Resolved]
  - Genital pain [Not Recovered/Not Resolved]
  - Dyspareunia [Not Recovered/Not Resolved]
  - Malignant neoplasm progression [Not Recovered/Not Resolved]
  - Metastases to liver [Not Recovered/Not Resolved]
  - Weight control [Not Recovered/Not Resolved]
  - Scab [Not Recovered/Not Resolved]
  - Skin atrophy [Not Recovered/Not Resolved]
  - Blister [Not Recovered/Not Resolved]
  - Epistaxis [Not Recovered/Not Resolved]
  - Fatigue [Not Recovered/Not Resolved]
  - Herpes zoster [Not Recovered/Not Resolved]
  - Dry skin [Not Recovered/Not Resolved]
  - Dysuria [Not Recovered/Not Resolved]
  - Erythema [Not Recovered/Not Resolved]
  - Metastases to bone [Not Recovered/Not Resolved]
  - Stress [Not Recovered/Not Resolved]
